FAERS Safety Report 8980833 (Version 4)
Quarter: 2013Q3

REPORT INFORMATION
  Report Type: Spontaneous
  Country: US (occurrence: US)
  Receive Date: 20121221
  Receipt Date: 20130926
  Transmission Date: 20140515
  Serious: No
  Sender: FDA-Public Use
  Company Number: US-PFIZER INC-2012325122

PATIENT
  Age: 54 Year
  Sex: Female
  Weight: 81.63 kg

DRUGS (19)
  1. LYRICA [Suspect]
     Indication: FIBROMYALGIA
     Dosage: 150 MG, 2X/DAY
     Route: 048
     Dates: start: 20120907, end: 20121218
  2. LYRICA [Suspect]
     Dosage: 150 MG, 3X/DAY
     Route: 048
     Dates: start: 201302, end: 201303
  3. METFORMIN [Concomitant]
     Indication: DIABETES MELLITUS
     Dosage: UNK
  4. LANTUS [Concomitant]
     Indication: DIABETES MELLITUS
     Dosage: UNK
  5. PRAVASTATIN [Concomitant]
     Indication: BLOOD CHOLESTEROL INCREASED
     Dosage: UNK
  6. METOPROLOL [Concomitant]
     Indication: HYPERTENSION
     Dosage: 25 MG, 2X/DAY
     Dates: start: 2010
  7. METOPROLOL [Concomitant]
     Dosage: UNK
  8. NEURONTIN [Concomitant]
     Dosage: UNK
  9. TRAMADOL [Concomitant]
     Dosage: UNK
  10. TRICOR [Concomitant]
     Dosage: UNK
  11. NOVOLOG [Concomitant]
     Dosage: UNK
  12. LISINOPRIL [Concomitant]
     Indication: HYPERTENSION
     Dosage: 10 MG, DAILY
     Dates: start: 2012
  13. HYDROCHLOROTHIAZID [Concomitant]
     Dosage: UNK
  14. PROLACTIN [Concomitant]
     Dosage: UNK
  15. NEXIUM [Concomitant]
     Dosage: UNK
  16. CITALOPRAM [Concomitant]
     Dosage: UNK
  17. LISINOPRIL W/HYDROCHLOROTHIAZIDE [Concomitant]
     Dosage: UNK
  18. LIPITOR [Concomitant]
     Dosage: UNK
  19. CELEXA [Concomitant]
     Dosage: UNK

REACTIONS (5)
  - Weight increased [Not Recovered/Not Resolved]
  - Feeling abnormal [Recovered/Resolved]
  - Pain [Recovered/Resolved]
  - Poor quality sleep [Not Recovered/Not Resolved]
  - Pain [Not Recovered/Not Resolved]
